FAERS Safety Report 9940898 (Version 3)
Quarter: 2014Q2

REPORT INFORMATION
  Report Type: Report from Study
  Country: TR (occurrence: TR)
  Receive Date: 20140303
  Receipt Date: 20140507
  Transmission Date: 20141212
  Serious: Yes (Other)
  Sender: FDA-Public Use
  Company Number: PHHY2014TR015865

PATIENT
  Age: 46 Year
  Sex: Male
  Weight: 98 kg

DRUGS (1)
  1. SANDOSTATIN LAR [Suspect]
     Indication: ACROMEGALY
     Dosage: 30 MG, ONCE EVERY 25 DAYS
     Route: 030
     Dates: start: 20070101

REACTIONS (9)
  - Blood glucose increased [Not Recovered/Not Resolved]
  - Infection [Not Recovered/Not Resolved]
  - Swelling [Not Recovered/Not Resolved]
  - Erythema [Not Recovered/Not Resolved]
  - Oral discomfort [Not Recovered/Not Resolved]
  - Burning sensation [Not Recovered/Not Resolved]
  - Hypersensitivity [Unknown]
  - Lip swelling [Unknown]
  - Inflammation [Unknown]
